FAERS Safety Report 6648357-5 (Version None)
Quarter: 2010Q1

REPORT INFORMATION
  Report Type: 
  Country: None (occurrence: None)
  Receive Date: 20100324
  Receipt Date: 20100310
  Transmission Date: 20100710
  Serious: Yes (Hospitalization, Other)
  Sender: FDA-Public Use
  Company Number: US-ELI_LILLY_AND_COMPANY-US201003000711

PATIENT
  Sex: Female

DRUGS (7)
  1. FORTEO [Suspect]
     Indication: OSTEOPOROSIS
     Dosage: 20 UG, DAILY (1/D)
     Dates: start: 20090101, end: 20100309
  2. DIAZEPAM [Concomitant]
  3. OXYCONTIN [Concomitant]
  4. GABAPENTIN [Concomitant]
  5. ANTIHYPERTENSIVES [Concomitant]
  6. POTASSIUM CHLORIDE [Concomitant]
     Dosage: UNK, AS NEEDED
  7. PLAQUENIL [Concomitant]

REACTIONS (8)
  - BLOOD BLISTER [None]
  - DIARRHOEA [None]
  - GASTROINTESTINAL HAEMORRHAGE [None]
  - HAEMATOCHEZIA [None]
  - INFLAMMATION [None]
  - INTESTINAL OBSTRUCTION [None]
  - PRESYNCOPE [None]
  - VOMITING [None]
